FAERS Safety Report 22395587 (Version 1)
Quarter: 2023Q2

REPORT INFORMATION
  Report Type: Spontaneous
  Country: US (occurrence: US)
  Receive Date: 20230601
  Receipt Date: 20230601
  Transmission Date: 20230721
  Serious: Yes (Death, Other)
  Sender: FDA-Public Use
  Company Number: US-Covis Pharma GmbH-2023COV01250

PATIENT
  Age: 75 Year
  Sex: Female
  Weight: 49.9 kg

DRUGS (4)
  1. RILUZOLE [Suspect]
     Active Substance: RILUZOLE
     Indication: Amyotrophic lateral sclerosis
     Dosage: --/--/2023 TO - ONGOING; 50 MG, 2X/DAY, G-TUBE
     Dates: start: 2023, end: 2023
  2. RILUZOLE [Suspect]
     Active Substance: RILUZOLE
     Indication: Motor neurone disease
  3. EXSERVAN [Suspect]
     Active Substance: RILUZOLE
     Indication: Amyotrophic lateral sclerosis
     Route: 048
     Dates: start: 202302, end: 2023
  4. EXSERVAN [Suspect]
     Active Substance: RILUZOLE
     Indication: Motor neurone disease

REACTIONS (5)
  - Sepsis [Fatal]
  - Respiratory failure [Fatal]
  - Pneumonia [Fatal]
  - Decubitus ulcer [Fatal]
  - Central venous catheterisation [Unknown]

NARRATIVE: CASE EVENT DATE: 20230101
